FAERS Safety Report 7383736-2 (Version None)
Quarter: 2011Q1

REPORT INFORMATION
  Report Type: 
  Country: None (occurrence: None)
  Receive Date: 20110330
  Receipt Date: 20110323
  Transmission Date: 20110831
  Serious: Yes (Hospitalization)
  Sender: FDA-Public Use
  Company Number: US-GILEAD-2010-0034758

PATIENT
  Sex: Male

DRUGS (16)
  1. LETAIRIS [Suspect]
     Indication: COR PULMONALE
  2. RAMIPRIL [Concomitant]
  3. OXYGEN [Concomitant]
  4. AMLODIPINE BESYLATE [Concomitant]
  5. ASPIRIN [Concomitant]
  6. TORSEMIDE [Concomitant]
  7. ADVAIR DISKUS 100/50 [Concomitant]
  8. PROVIGIL [Concomitant]
  9. LETAIRIS [Suspect]
     Indication: PULMONARY ARTERIAL HYPERTENSION
     Route: 048
     Dates: start: 20100830
  10. REVATIO [Concomitant]
  11. ATENOLOL [Concomitant]
  12. JANUVIA [Concomitant]
  13. COUMADIN [Concomitant]
  14. LETAIRIS [Suspect]
     Indication: CHRONIC OBSTRUCTIVE PULMONARY DISEASE
  15. TYVASO [Concomitant]
  16. LOVASTATIN [Concomitant]

REACTIONS (2)
  - DYSPNOEA EXERTIONAL [None]
  - FLUID OVERLOAD [None]
